FAERS Safety Report 4736826-4 (Version None)
Quarter: 2005Q3

REPORT INFORMATION
  Report Type: 
  Country: None (occurrence: None)
  Receive Date: 20050805
  Receipt Date: 20050722
  Transmission Date: 20060218
  Serious: No
  Sender: FDA-Public Use
  Company Number: 216333

PATIENT
  Age: 58 Year
  Sex: Male
  Weight: 90.7 kg

DRUGS (2)
  1. AVASTIN [Suspect]
     Indication: OLIGODENDROGLIOMA
     Dosage: 948 MG
     Dates: start: 20050519
  2. IRINOTECAN HCL [Suspect]
     Indication: GLIOBLASTOMA MULTIFORME
     Dosage: 125 MG
     Dates: start: 20050630

REACTIONS (2)
  - NAUSEA [None]
  - NEUTROPENIA [None]
